FAERS Safety Report 8139679-X (Version None)
Quarter: 2012Q1

REPORT INFORMATION
  Report Type: 
  Country: None (occurrence: None)
  Receive Date: 20120215
  Receipt Date: 20120208
  Transmission Date: 20120608
  Serious: Yes (Other)
  Sender: FDA-Public Use
  Company Number: PHHY2010CA24385

PATIENT
  Sex: Female

DRUGS (11)
  1. ASPIRIN [Concomitant]
     Route: 048
  2. COZAAR [Concomitant]
     Dosage: 100 MG, UNK
  3. EXJADE [Suspect]
     Dosage: 500 MG, QD
     Route: 048
     Dates: end: 20110808
  4. SENOKOT [Concomitant]
  5. LORAZEPAM [Concomitant]
  6. EXTRA STRENGTH TYLENOL [Concomitant]
  7. WATER PILLS [Concomitant]
     Route: 048
  8. GRAVOL TAB [Concomitant]
  9. EPREX [Concomitant]
  10. EXJADE [Suspect]
     Indication: MYELODYSPLASTIC SYNDROME
     Dosage: 875 MG, QD
     Route: 048
     Dates: start: 20090301
  11. METOCLOPRAMIDE [Concomitant]
     Dosage: 0.5 DF, BID
     Route: 048

REACTIONS (5)
  - NAUSEA [None]
  - BLOOD CREATININE INCREASED [None]
  - DIARRHOEA [None]
  - ATRIAL FIBRILLATION [None]
  - BLOOD IRON INCREASED [None]
